FAERS Safety Report 26076502 (Version 3)
Quarter: 2025Q4

REPORT INFORMATION
  Report Type: Report from Study
  Country: US (occurrence: US)
  Receive Date: 20251121
  Receipt Date: 20251229
  Transmission Date: 20260117
  Serious: Yes (Other)
  Sender: PFIZER
  Company Number: US-PFIZER INC-PV202300187541

PATIENT
  Age: 75 Year
  Sex: Male
  Weight: 98.1 kg

DRUGS (4)
  1. BOSULIF [Suspect]
     Active Substance: BOSUTINIB MONOHYDRATE
     Indication: Myeloid leukaemia
     Dosage: 200 MG, DAILY
     Route: 048
     Dates: start: 20180506
  2. BOSULIF [Suspect]
     Active Substance: BOSUTINIB MONOHYDRATE
     Indication: Philadelphia positive chronic myeloid leukaemia
     Dosage: 100 MG DAILY
     Route: 048
     Dates: start: 202205
  3. BOSULIF [Suspect]
     Active Substance: BOSUTINIB MONOHYDRATE
     Dosage: TAKE 2 TABLETS (200 MG TOTAL) BY MOUTH DAILY
     Route: 048
     Dates: start: 202211
  4. AMLODIPINE [Concomitant]
     Active Substance: AMLODIPINE BESYLATE
     Dosage: TAKE 5 MG BY MOUTH 2 (TWO) TIMES A DAY
     Route: 048

REACTIONS (1)
  - Philadelphia chromosome positive [Recovering/Resolving]

NARRATIVE: CASE EVENT DATE: 20220801
